FAERS Safety Report 9321919 (Version 2)
Quarter: 2013Q2

REPORT INFORMATION
  Report Type: Spontaneous
  Country: US (occurrence: None)
  Receive Date: 20130530
  Receipt Date: 20130530
  Transmission Date: 20140414
  Serious: Yes (Hospitalization)
  Sender: FDA-Public Use
  Company Number: None

PATIENT
  Age: 72 Year
  Sex: Female
  Weight: 95 kg

DRUGS (15)
  1. BACLOFEN [Suspect]
     Indication: PAIN
     Dosage: 5 MG TID PO
     Route: 048
     Dates: start: 20130521, end: 20130524
  2. OXYCODONE PROCRIT -EPOETIN ALFA- [Concomitant]
  3. AMIODARONE {CORDARONE}? [Concomitant]
  4. ASPIRIN {ASA} [Concomitant]
  5. POLYETHYLENE GLYCOL 3350 ?{MIRALAX} [Concomitant]
  6. PREGABALIN {LYRICA} [Concomitant]
  7. SEVELAMER CARBONATE {RENVELA} [Concomitant]
  8. CINACALCET {SENSIPAR} [Concomitant]
  9. SERTRALINE {ZOLOFT} [Concomitant]
  10. ACETAMINOPHEN {TYLENOL} [Concomitant]
  11. BISACODYL SUPP {DULCOLAX} [Concomitant]
  12. HYDROXYZINE HCL {ATARAX} [Concomitant]
  13. NITROGLYCERIN {NITROSTAT} [Concomitant]
  14. LACTULOSE {DUPHALAC} [Concomitant]
  15. HEPARIN [Concomitant]

REACTIONS (2)
  - Mental status changes [None]
  - Toxicity to various agents [None]
